FAERS Safety Report 21851192 (Version 1)
Quarter: 2023Q1

REPORT INFORMATION
  Report Type: Spontaneous
  Country: US (occurrence: US)
  Receive Date: 20230112
  Receipt Date: 20230112
  Transmission Date: 20230417
  Serious: Yes (Hospitalization)
  Sender: FDA-Public Use
  Company Number: US-002147023-NVSC2023US003815

PATIENT
  Age: 20 Year
  Sex: Male

DRUGS (4)
  1. OXCARBAZEPINE [Suspect]
     Active Substance: OXCARBAZEPINE
     Indication: Psychotherapy
     Dosage: UNK
     Route: 065
  2. TOPIRAMATE [Suspect]
     Active Substance: TOPIRAMATE
     Indication: Psychotherapy
     Dosage: UNK
     Route: 065
  3. LORAZEPAM [Concomitant]
     Active Substance: LORAZEPAM
     Indication: Psychotherapy
     Dosage: UNK
     Route: 065
  4. CLONIDINE [Concomitant]
     Active Substance: CLONIDINE
     Indication: Psychotherapy
     Dosage: UNK
     Route: 065

REACTIONS (3)
  - Neuroleptic malignant syndrome [Recovering/Resolving]
  - Drug withdrawal syndrome [Recovering/Resolving]
  - Product use in unapproved indication [Unknown]
